FAERS Safety Report 25789982 (Version 2)
Quarter: 2025Q4

REPORT INFORMATION
  Report Type: Report from Study
  Country: US (occurrence: US)
  Receive Date: 20250911
  Receipt Date: 20251003
  Transmission Date: 20260117
  Serious: Yes (Other)
  Sender: AMGEN
  Company Number: US-AMGEN-USASP2025177026

PATIENT
  Age: 38 Year
  Sex: Female

DRUGS (3)
  1. TEPEZZA [Suspect]
     Active Substance: TEPROTUMUMAB-TRBW
     Indication: Toxic goitre
     Dosage: 1600 MILLIGRAM, Q3WK
     Route: 040
     Dates: start: 20250515
  2. TEPEZZA [Suspect]
     Active Substance: TEPROTUMUMAB-TRBW
     Dosage: UNK UNK, Q3WK, FIFTH INFUSION
     Route: 040
     Dates: start: 2025
  3. TEPEZZA [Suspect]
     Active Substance: TEPROTUMUMAB-TRBW
     Dosage: UNK UNK, Q3WK, SIXTH INFUSION
     Route: 040
     Dates: start: 2025

REACTIONS (5)
  - Ear discomfort [Unknown]
  - Hypoacusis [Unknown]
  - Tinnitus [Unknown]
  - Inappropriate schedule of product administration [Unknown]
  - Acoustic stimulation tests abnormal [Unknown]

NARRATIVE: CASE EVENT DATE: 20250101
